FAERS Safety Report 12202088 (Version 1)
Quarter: 2016Q1

REPORT INFORMATION
  Report Type: Spontaneous
  Country: DE (occurrence: DE)
  Receive Date: 20160322
  Receipt Date: 20160322
  Transmission Date: 20160526
  Serious: Yes (Other)
  Sender: FDA-Public Use
  Company Number: DE-TEVA-642847GER

PATIENT
  Age: 74 Year
  Sex: Female

DRUGS (3)
  1. METOPROLOL-RATIOPHARM 100 MG TABLETTEN [Suspect]
     Active Substance: METOPROLOL
     Dosage: 100 MILLIGRAM DAILY;
     Route: 048
  2. TIMOPHTAL [Concomitant]
     Indication: INTRAOCULAR PRESSURE INCREASED
  3. METOPROLOL-RATIOPHARM 100 MG TABLETTEN [Suspect]
     Active Substance: METOPROLOL
     Dosage: 200 MILLIGRAM DAILY;
     Route: 048

REACTIONS (2)
  - Optic nerve injury [Not Recovered/Not Resolved]
  - Hypotension [Not Recovered/Not Resolved]
